FAERS Safety Report 21937862 (Version 1)
Quarter: 2023Q1

REPORT INFORMATION
  Report Type: Spontaneous
  Country: KR (occurrence: KR)
  Receive Date: 20230201
  Receipt Date: 20230201
  Transmission Date: 20230418
  Serious: Yes (Other)
  Sender: FDA-Public Use
  Company Number: KR-ALXN-A202301049

PATIENT
  Age: 34 Year
  Sex: Male

DRUGS (1)
  1. SOLIRIS [Suspect]
     Active Substance: ECULIZUMAB
     Indication: Atypical haemolytic uraemic syndrome
     Dosage: UNK
     Route: 065

REACTIONS (4)
  - Atypical haemolytic uraemic syndrome [Recovering/Resolving]
  - Disease recurrence [Recovering/Resolving]
  - Renal failure [Recovering/Resolving]
  - Kidney transplant rejection [Recovering/Resolving]
